FAERS Safety Report 22124789 (Version 2)
Quarter: 2023Q4

REPORT INFORMATION
  Report Type: Report from Study
  Country: FR (occurrence: FR)
  Receive Date: 20230322
  Receipt Date: 20231010
  Transmission Date: 20240109
  Serious: Yes (Death, Hospitalization, Other)
  Sender: FDA-Public Use
  Company Number: None

PATIENT
  Age: 56 Year
  Sex: Female
  Weight: 66 kg

DRUGS (1)
  1. SACITUZUMAB GOVITECAN-HZIY [Suspect]
     Active Substance: SACITUZUMAB GOVITECAN-HZIY
     Indication: Triple negative breast cancer
     Dosage: 660 MG (10 MG/KG)
     Route: 042
     Dates: start: 20221209, end: 20221209

REACTIONS (2)
  - Thrombocytopenia [Fatal]
  - Bicytopenia [Fatal]

NARRATIVE: CASE EVENT DATE: 20221213
